FAERS Safety Report 7564538-0 (Version None)
Quarter: 2011Q2

REPORT INFORMATION
  Report Type: 
  Country: None (occurrence: None)
  Receive Date: 20110622
  Receipt Date: 20100512
  Transmission Date: 20111010
  Serious: Yes (Death)
  Sender: FDA-Public Use
  Company Number: US-MYLANLABS-2010S1008549

PATIENT
  Age: 79 Year
  Sex: Male

DRUGS (10)
  1. ZOLOFT [Concomitant]
  2. QUINAPRIL HCL [Concomitant]
  3. VITAMIN TAB [Concomitant]
  4. DYAZIDE [Concomitant]
  5. SEROQUEL [Concomitant]
  6. CLOZAPINE [Suspect]
     Indication: PSYCHOTIC DISORDER
     Route: 048
     Dates: start: 20060510, end: 20070211
  7. SINEMET [Concomitant]
  8. PRILOSEC [Concomitant]
  9. POTASSIUM [Concomitant]
  10. SENOKOT [Concomitant]

REACTIONS (1)
  - DEATH [None]
